FAERS Safety Report 4594118-0 (Version None)
Quarter: 2005Q1

REPORT INFORMATION
  Report Type: 
  Country: None (occurrence: None)
  Receive Date: 20050301
  Receipt Date: 20050217
  Transmission Date: 20050727
  Serious: Yes (Other)
  Sender: FDA-Public Use
  Company Number: JP-JNJFOC-20050205999

PATIENT
  Age: 54 Year

DRUGS (1)
  1. RISPERDAL [Suspect]
     Route: 049

REACTIONS (2)
  - BRADYCARDIA [None]
  - SINUS ARREST [None]
